FAERS Safety Report 10899482 (Version 1)
Quarter: 2015Q1

REPORT INFORMATION
  Report Type: Report from Study
  Country: US (occurrence: US)
  Receive Date: 20150309
  Receipt Date: 20150309
  Transmission Date: 20150721
  Serious: Yes (Other)
  Sender: FDA-Public Use
  Company Number: US-ABBVIE-11P-163-0855568-00

PATIENT
  Age: 30 Year
  Sex: Female
  Weight: 79.45 kg

DRUGS (13)
  1. MULTIVITAMINS [Concomitant]
     Active Substance: VITAMINS
     Indication: BRONCHITIS
     Route: 048
     Dates: start: 20110207, end: 20110213
  2. CAFFEINE. [Concomitant]
     Active Substance: CAFFEINE
     Indication: BLOOD CAFFEINE
     Dosage: SODA 1.5 SERVING
     Route: 048
     Dates: start: 20110110, end: 20110210
  3. CAFFEINE. [Concomitant]
     Active Substance: CAFFEINE
     Dosage: SODA 1.0 SERVING
     Route: 048
     Dates: start: 20110211
  4. PHENERGAN W/ CODEINE [Concomitant]
     Active Substance: CODEINE PHOSPHATE\PROMETHAZINE HYDROCHLORIDE
     Indication: BRONCHITIS
     Route: 048
     Dates: start: 20110205, end: 20110208
  5. IBUPROFEN. [Concomitant]
     Active Substance: IBUPROFEN
     Indication: PYREXIA
     Route: 048
     Dates: start: 20110110, end: 20110210
  6. TYLENOL [Concomitant]
     Active Substance: ACETAMINOPHEN
     Indication: HEADACHE
  7. CLOBETASOL PROPIONATE. [Concomitant]
     Active Substance: CLOBETASOL PROPIONATE
     Indication: PSORIASIS
     Dosage: FACE, SCALP
     Route: 061
     Dates: start: 20110101, end: 20110210
  8. HUMIRA [Suspect]
     Active Substance: ADALIMUMAB
     Indication: PSORIASIS
     Route: 058
     Dates: start: 20110110
  9. PROVERA [Concomitant]
     Active Substance: MEDROXYPROGESTERONE ACETATE
     Indication: MENSTRUAL DISORDER
     Route: 048
     Dates: start: 20110124, end: 20110203
  10. VICKS NYQUIL [Concomitant]
     Active Substance: ACETAMINOPHEN\DEXTROMETHORPHAN HYDROBROMIDE\DOXYLAMINE SUCCINATE
     Indication: BRONCHITIS
     Dosage: LIQUICAPS
     Route: 048
     Dates: start: 20110201, end: 20110203
  11. PRENATAL VITAMINS [Concomitant]
     Active Substance: VITAMINS
     Indication: PRODUCT USED FOR UNKNOWN INDICATION
     Route: 048
     Dates: start: 20110214
  12. TYLENOL [Concomitant]
     Active Substance: ACETAMINOPHEN
     Indication: PYREXIA
     Route: 048
     Dates: start: 20110110
  13. LEVAQUIN [Concomitant]
     Active Substance: LEVOFLOXACIN
     Indication: BRONCHITIS
     Route: 048
     Dates: start: 20110210, end: 20110214

REACTIONS (3)
  - Pelvic pain [Recovered/Resolved]
  - Bronchitis [Recovered/Resolved]
  - Abortion spontaneous [Unknown]

NARRATIVE: CASE EVENT DATE: 20110120
